FAERS Safety Report 5763693-2 (Version None)
Quarter: 2008Q2

REPORT INFORMATION
  Report Type: 
  Country: None (occurrence: None)
  Receive Date: 20080610
  Receipt Date: 20080605
  Transmission Date: 20081010
  Serious: Yes (Hospitalization, Other)
  Sender: FDA-Public Use
  Company Number: US-BRISTOL-MYERS SQUIBB COMPANY-14217038

PATIENT
  Age: 76 Year
  Sex: Female
  Weight: 60 kg

DRUGS (21)
  1. COUMADIN [Suspect]
     Indication: AORTIC VALVE REPLACEMENT
     Dosage: ALSO 7.5MG-CONTINUES
     Dates: start: 20080124, end: 20080215
  2. ENOXAPARIN SODIUM [Suspect]
     Indication: AORTIC VALVE REPLACEMENT
     Route: 058
     Dates: start: 20080117, end: 20080214
  3. LISINOPRIL [Concomitant]
     Dates: start: 20080124, end: 20080215
  4. ATENOLOL [Concomitant]
     Dates: start: 20080124, end: 20080215
  5. DIGOXIN [Concomitant]
     Dates: start: 20080124, end: 20080215
  6. GABAPENTIN [Concomitant]
     Dates: start: 20080124, end: 20080215
  7. LIDOCAINE [Concomitant]
  8. ERGOCALCIFEROL [Concomitant]
  9. ASCORBIC ACID [Concomitant]
  10. FOLIC ACID [Concomitant]
  11. THIAMINE HCL [Concomitant]
  12. RETINOL [Concomitant]
  13. RIBOFLAVIN TAB [Concomitant]
  14. NICOTINAMIDE [Concomitant]
  15. PANTHENOL [Concomitant]
  16. ASPIRIN [Concomitant]
  17. OXYCODONE HCL [Concomitant]
  18. PERCOCET [Concomitant]
  19. ACETAMINOPHEN [Concomitant]
  20. OXYCODONE TEREPHTHALATE [Concomitant]
  21. VITAMIN CAP [Concomitant]

REACTIONS (8)
  - ABDOMINAL WALL HAEMATOMA [None]
  - ANAEMIA [None]
  - BLOOD PRESSURE DECREASED [None]
  - DISSEMINATED INTRAVASCULAR COAGULATION [None]
  - ECCHYMOSIS [None]
  - INTERNATIONAL NORMALISED RATIO INCREASED [None]
  - INTRA-ABDOMINAL HAEMORRHAGE [None]
  - WHITE BLOOD CELL COUNT INCREASED [None]
